FAERS Safety Report 18214057 (Version 1)
Quarter: 2020Q3

REPORT INFORMATION
  Report Type: Spontaneous
  Country: DE (occurrence: DE)
  Receive Date: 20200831
  Receipt Date: 20200831
  Transmission Date: 20201103
  Serious: Yes (Hospitalization)
  Sender: FDA-Public Use
  Company Number: DE-TEVA-2020-DE-1819681

PATIENT
  Age: 92 Year
  Sex: Female
  Weight: 59 kg

DRUGS (15)
  1. PANTOPRAZOL [Concomitant]
     Active Substance: PANTOPRAZOLE SODIUM
     Dosage: 40 MILLIGRAM DAILY; 1?0?0?0,
     Route: 048
  2. PIROXICAM. [Suspect]
     Active Substance: PIROXICAM
     Dosage: 20 MILLIGRAM DAILY;  1?0?1?0
     Route: 048
  3. TILIDINE/NALOXONE [Concomitant]
     Active Substance: NALOXONE HYDROCHLORIDE\TILIDINE HYDROCHLORIDE
     Dosage: 2 DOSAGE FORMS DAILY; 8|100 MG, 1?0?1?0
     Route: 048
  4. CEFUROXIM [Concomitant]
     Active Substance: CEFUROXIME
     Dosage: 1000 MILLIGRAM DAILY; , 1?0?1?0
     Route: 048
  5. AMLODIPIN [Suspect]
     Active Substance: AMLODIPINE BESYLATE
     Dosage: 1 DOSAGE FORMS DAILY; 10 MG, 0.5?0?0.5?0
     Route: 048
  6. AMITRIPTYLIN [Concomitant]
     Active Substance: AMITRIPTYLINE
     Dosage: 10 MILLIGRAM DAILY;  0?0?0?1
     Route: 048
  7. TORASEMID [Interacting]
     Active Substance: TORSEMIDE
     Dosage: 20 MG, 1?0.5?0?0
     Route: 048
  8. MACROGOL [Concomitant]
     Active Substance: POLYETHYLENE GLYCOLS
     Dosage: 27.6 GRAM DAILY; 1?0?1?0, SACHET
     Route: 048
  9. BUPRENORPHINE. [Concomitant]
     Active Substance: BUPRENORPHINE
     Dosage: 20 MG / WEEK, 1X
     Route: 062
  10. ENOXAPARIN [Concomitant]
     Active Substance: ENOXAPARIN
     Dosage: 60 MILLIGRAM DAILY;  1?0?0?0, PRE?FILLED SYRINGES
     Route: 058
  11. COLECALCIFEROL (VITAMIN D) [Concomitant]
     Dosage: 20,000 IU / WEEK, 1X
     Route: 048
  12. RAMIPRIL. [Suspect]
     Active Substance: RAMIPRIL
     Dosage: 10 MILLIGRAM DAILY; 1?0?1?0
     Route: 048
  13. METAMIZOL [Suspect]
     Active Substance: METAMIZOLE SODIUM
     Dosage: 2000 MILLIGRAM DAILY; 1?1?1?1
     Route: 048
  14. METOCLOPRAMID [Concomitant]
     Active Substance: METOCLOPRAMIDE
     Dosage: 20 MILLIGRAM DAILY; 1?0?1?0
     Route: 048
  15. PREDNISOLON [Interacting]
     Active Substance: PREDNISOLONE
     Dosage: .5 DOSAGE FORMS DAILY; 20 MG, 0.5?0?0?0
     Route: 048

REACTIONS (8)
  - Erythema [Unknown]
  - Peripheral swelling [Unknown]
  - Wound [Unknown]
  - Localised infection [Unknown]
  - Arthralgia [Unknown]
  - Labelled drug-drug interaction medication error [Unknown]
  - Product prescribing error [Unknown]
  - Product monitoring error [Unknown]
